FAERS Safety Report 9136303 (Version 1)
Quarter: 2013Q1

REPORT INFORMATION
  Report Type: Other
  Country: GB (occurrence: GB)
  Receive Date: 20130304
  Receipt Date: 20130304
  Transmission Date: 20140127
  Serious: Yes (Other)
  Sender: FDA-Public Use
  Company Number: GB-WATSON-2013-02811

PATIENT
  Age: 65 Year
  Sex: Female
  Weight: 101 kg

DRUGS (3)
  1. IRBESARTAN (UNKNOWN) [Suspect]
     Indication: HYPERTENSION
     Dosage: 150 MG, DAILY
     Route: 048
     Dates: start: 20130114
  2. QVAR [Concomitant]
     Indication: ASTHMA
     Dosage: UNK
     Route: 065
  3. THYROXINE [Concomitant]
     Indication: PRODUCT USED FOR UNKNOWN INDICATION
     Dosage: 100 MCG, UNKNOWN
     Route: 065

REACTIONS (2)
  - Fatigue [Recovered/Resolved]
  - Hypersomnia [Recovered/Resolved]
